FAERS Safety Report 7598341-2 (Version None)
Quarter: 2011Q3

REPORT INFORMATION
  Report Type: 
  Country: None (occurrence: None)
  Receive Date: 20110708
  Receipt Date: 20110628
  Transmission Date: 20111222
  Serious: Yes (Other)
  Sender: FDA-Public Use
  Company Number: PHHY2011CA57492

PATIENT
  Sex: Male

DRUGS (2)
  1. AFINITOR [Suspect]
     Indication: NEUROENDOCRINE TUMOUR
     Dosage: 10 MG
     Route: 048
     Dates: start: 20100418
  2. SANDOSTATIN LAR [Suspect]
     Indication: NEUROENDOCRINE TUMOUR
     Dosage: 30 MG EVERY TWO WEEKS
     Route: 030
     Dates: start: 20101025

REACTIONS (5)
  - DRY MOUTH [None]
  - STOMATITIS [None]
  - ORAL PAIN [None]
  - DYSGEUSIA [None]
  - HYPOPHAGIA [None]
